FAERS Safety Report 6596208-X (Version None)
Quarter: 2010Q1

REPORT INFORMATION
  Report Type: 
  Country: None (occurrence: None)
  Receive Date: 20100219
  Receipt Date: 20100219
  Transmission Date: 20100710
  Serious: Yes (Hospitalization)
  Sender: FDA-Public Use
  Company Number: None

PATIENT
  Sex: Male
  Weight: 107.3 kg

DRUGS (2)
  1. CISPLATIN [Suspect]
     Dosage: 45 MG
     Dates: end: 20100210
  2. TAXOL [Suspect]
     Dosage: 91 MG
     Dates: end: 20100210

REACTIONS (4)
  - DECREASED APPETITE [None]
  - DEHYDRATION [None]
  - NAUSEA [None]
  - VOMITING [None]
